FAERS Safety Report 10178090 (Version 1)
Quarter: 2014Q2

REPORT INFORMATION
  Report Type: Spontaneous
  Country: US (occurrence: US)
  Receive Date: 20140518
  Receipt Date: 20140518
  Transmission Date: 20141212
  Serious: Yes (Death, Other)
  Sender: FDA-Public Use
  Company Number: US-BRISTOL-MYERS SQUIBB COMPANY-20733846

PATIENT
  Age: 31 Year
  Sex: Female

DRUGS (3)
  1. ABILIFY [Suspect]
     Indication: DEPRESSION
     Dates: start: 20130409
  2. METFORMIN HCL [Interacting]
     Indication: DIABETES MELLITUS
  3. FENTANYL PATCH [Concomitant]
     Indication: PAIN

REACTIONS (2)
  - Myocardial infarction [Fatal]
  - Drug interaction [Unknown]
